FAERS Safety Report 8096260 (Version 2)
Quarter: 2012Q4

REPORT INFORMATION
  Report Type: Report from Study
  Country: NZ (occurrence: NZ)
  Receive Date: 20110818
  Receipt Date: 20121205
  Transmission Date: 20130627
  Serious: Yes (Death, Hospitalization, Other)
  Sender: FDA-Public Use
  Company Number: PHHY2011NZ73344

PATIENT
  Age: 78 Year
  Sex: Female
  Weight: 65 kg

DRUGS (1)
  1. CLOZARIL [Suspect]
     Indication: SCHIZOPHRENIA
     Route: 048
     Dates: start: 20001117, end: 201105

REACTIONS (5)
  - Bronchopneumonia [Fatal]
  - Cardiac failure congestive [Fatal]
  - Upper limb fracture [Unknown]
  - Femoral neck fracture [Unknown]
  - Sedation [Unknown]
